FAERS Safety Report 4859967-X (Version None)
Quarter: 2005Q4

REPORT INFORMATION
  Report Type: 
  Country: None (occurrence: None)
  Receive Date: 20051219
  Receipt Date: 20050419
  Transmission Date: 20060501
  Serious: Yes (Hospitalization, Other)
  Sender: FDA-Public Use
  Company Number: US-MERCK-0504USA03772

PATIENT
  Age: 52 Year
  Sex: Female
  Weight: 111 kg

DRUGS (1)
  1. VIOXX [Suspect]
     Indication: PAIN
     Route: 048
     Dates: start: 19990101, end: 20000101

REACTIONS (35)
  - ABDOMINAL DISCOMFORT [None]
  - ASTHMA [None]
  - BLOOD CHOLESTEROL INCREASED [None]
  - BLOOD PRESSURE DECREASED [None]
  - BLOOD TRIGLYCERIDES INCREASED [None]
  - BRONCHOSPASM [None]
  - CARDIAC FAILURE CONGESTIVE [None]
  - CARDIOMYOPATHY [None]
  - CEREBROVASCULAR ACCIDENT [None]
  - CLUMSINESS [None]
  - CONTUSION [None]
  - DEPRESSION [None]
  - DIABETES MELLITUS [None]
  - DIZZINESS [None]
  - DIZZINESS POSTURAL [None]
  - EAR INFECTION [None]
  - FLUID RETENTION [None]
  - HEADACHE [None]
  - HYPERLIPIDAEMIA [None]
  - HYPERSENSITIVITY [None]
  - HYPOTHYROIDISM [None]
  - HYPOVOLAEMIA [None]
  - MARITAL PROBLEM [None]
  - MEMORY IMPAIRMENT [None]
  - MENTAL IMPAIRMENT [None]
  - MENTAL STATUS CHANGES [None]
  - MITRAL VALVE INCOMPETENCE [None]
  - MYOCARDIAL INFARCTION [None]
  - NEUROPATHY PERIPHERAL [None]
  - PERONEAL NERVE PALSY [None]
  - SINUSITIS [None]
  - TENDONITIS [None]
  - TREMOR [None]
  - UPPER RESPIRATORY TRACT INFECTION [None]
  - VULVOVAGINAL MYCOTIC INFECTION [None]
